FAERS Safety Report 4765673-2 (Version None)
Quarter: 2005Q3

REPORT INFORMATION
  Report Type: 
  Country: None (occurrence: None)
  Receive Date: 20050908
  Receipt Date: 20050908
  Transmission Date: 20060218
  Serious: Yes (Life-Threatening)
  Sender: FDA-Public Use
  Company Number: None

PATIENT
  Age: 40 Year
  Sex: Male
  Weight: 78.2 kg

DRUGS (1)
  1. TEMOZOLOMIDE 75MG/M2 SCHERING PLOUGH [Suspect]
     Indication: MIXED OLIGO-ASTROCYTOMA
     Dosage: 75MG/M2 X49DAYS PO
     Route: 048
     Dates: start: 20050114, end: 20050804

REACTIONS (3)
  - DRUG TOXICITY [None]
  - NEUTROPENIA [None]
  - WHITE BLOOD CELL COUNT DECREASED [None]
